FAERS Safety Report 7445150-0 (Version None)
Quarter: 2011Q2

REPORT INFORMATION
  Report Type: 
  Country: None (occurrence: None)
  Receive Date: 20110429
  Receipt Date: 20110426
  Transmission Date: 20111010
  Serious: Yes (Hospitalization, Other)
  Sender: FDA-Public Use
  Company Number: CA-ABBOTT-11P-028-0714597-00

PATIENT
  Sex: Female
  Weight: 81.72 kg

DRUGS (2)
  1. ORTHO TRI-CYCLEN [Concomitant]
     Indication: ORAL CONTRACEPTION
     Route: 048
     Dates: start: 20110301
  2. HUMIRA [Suspect]
     Indication: CROHN'S DISEASE
     Route: 058
     Dates: start: 20090824

REACTIONS (3)
  - ABDOMINAL WALL ABSCESS [None]
  - CROHN'S DISEASE [None]
  - ENTEROCUTANEOUS FISTULA [None]
